FAERS Safety Report 6276077-8 (Version None)
Quarter: 2009Q3

REPORT INFORMATION
  Report Type: 
  Country: None (occurrence: None)
  Receive Date: 20090722
  Receipt Date: 20090713
  Transmission Date: 20100115
  Serious: Yes (Hospitalization)
  Sender: FDA-Public Use
  Company Number: US-BIOGENIDEC-2009BI021473

PATIENT
  Age: 44 Year
  Sex: Male
  Weight: 74 kg

DRUGS (3)
  1. AVONEX [Suspect]
     Indication: MULTIPLE SCLEROSIS
     Route: 030
     Dates: start: 19960101
  2. AVONEX [Suspect]
     Route: 030
     Dates: end: 20080101
  3. AVONEX [Suspect]
     Route: 030
     Dates: start: 20080101, end: 20090703

REACTIONS (7)
  - ABASIA [None]
  - DIARRHOEA [None]
  - HEADACHE [None]
  - HYPOPHAGIA [None]
  - PHOTOPHOBIA [None]
  - VOMITING [None]
  - WEIGHT DECREASED [None]
